FAERS Safety Report 7465561-7 (Version None)
Quarter: 2011Q2

REPORT INFORMATION
  Report Type: 
  Country: None (occurrence: None)
  Receive Date: 20110509
  Receipt Date: 20110503
  Transmission Date: 20111010
  Serious: Yes (Life-Threatening, Other)
  Sender: FDA-Public Use
  Company Number: FR-ROCHE-775289

PATIENT
  Age: 53 Year
  Sex: Female

DRUGS (5)
  1. ANTICOAGULANT [Concomitant]
  2. DIURETIC [Concomitant]
  3. COPEGUS [Suspect]
     Indication: HEPATITIS C
     Route: 048
  4. PEGASYS [Suspect]
     Indication: HEPATITIS C
     Route: 058
  5. ANGIOTENSIN [Concomitant]
     Dosage: DRUG REPORTED AS: ANGIOTENSIN CONVERTING ENZYME

REACTIONS (2)
  - CARDIAC FAILURE [None]
  - ANAEMIA [None]
